FAERS Safety Report 6489678-9 (Version None)
Quarter: 2009Q4

REPORT INFORMATION
  Report Type: 
  Country: None (occurrence: None)
  Receive Date: 20091210
  Receipt Date: 20091126
  Transmission Date: 20100525
  Serious: Yes (Death, Other)
  Sender: FDA-Public Use
  Company Number: GR-GENENTECH-295587

PATIENT
  Sex: Male

DRUGS (10)
  1. RITUXIMAB [Suspect]
     Indication: CHRONIC LYMPHOCYTIC LEUKAEMIA
     Dosage: RECEIVED 6 CYCLES
     Route: 065
     Dates: start: 20060101
  2. RITUXIMAB [Suspect]
     Dosage: RECEIVED 3 CYCLES
     Route: 065
     Dates: start: 20080101
  3. CYCLOPHOSPHAMIDE [Suspect]
     Indication: CHRONIC LYMPHOCYTIC LEUKAEMIA
     Dosage: RECEIVED  6 CYCLES
     Route: 065
     Dates: start: 20060101
  4. CYCLOPHOSPHAMIDE [Suspect]
     Dosage: RECEIVED 3 CYCLES
     Route: 065
     Dates: start: 20080101
  5. VINCRISTINE [Suspect]
     Indication: CHRONIC LYMPHOCYTIC LEUKAEMIA
     Dosage: RECEIVED 6 CYCLES
     Route: 065
     Dates: start: 20060101
  6. PREDNISOLONE [Suspect]
     Indication: CHRONIC LYMPHOCYTIC LEUKAEMIA
     Dosage: RECEIVED 6 CYCLES
     Route: 065
     Dates: start: 20060101
  7. MITOXANTRONE [Suspect]
     Indication: CHRONIC LYMPHOCYTIC LEUKAEMIA
     Dosage: RECEIVED 3 CYCLES
     Route: 065
     Dates: start: 20070101
  8. DEXAMETHASONE TAB [Suspect]
     Indication: CHRONIC LYMPHOCYTIC LEUKAEMIA
     Dosage: RECEIVED 3 CYCLES
     Route: 065
     Dates: start: 20070101
  9. FLUDARABINE [Suspect]
     Indication: CHRONIC LYMPHOCYTIC LEUKAEMIA
     Dosage: RECEIVED 3 CYCLES
     Route: 065
     Dates: start: 20070101
  10. FLUDARABINE [Suspect]
     Dosage: RECEIVED 3 CYCLES
     Route: 065
     Dates: start: 20080101

REACTIONS (2)
  - CHRONIC LYMPHOCYTIC LEUKAEMIA [None]
  - PROGRESSIVE MULTIFOCAL LEUKOENCEPHALOPATHY [None]
